FAERS Safety Report 12892322 (Version 2)
Quarter: 2016Q4

REPORT INFORMATION
  Report Type: Report from Study
  Country: US (occurrence: US)
  Receive Date: 20161028
  Receipt Date: 20161219
  Transmission Date: 20170207
  Serious: Yes (Hospitalization)
  Sender: FDA-Public Use
  Company Number: PHEH2016US027864

PATIENT
  Age: 85 Year
  Sex: Male

DRUGS (1)
  1. EXELON PATCH [Suspect]
     Active Substance: RIVASTIGMINE
     Indication: DEMENTIA
     Dosage: 9.5 MG (PATCH 10 (CM2) , QD
     Route: 062
     Dates: start: 20150207

REACTIONS (5)
  - Ischaemic stroke [Recovered/Resolved]
  - Fall [Unknown]
  - Gait disturbance [Unknown]
  - Motor dysfunction [Unknown]
  - Aphasia [Unknown]

NARRATIVE: CASE EVENT DATE: 20150512
